FAERS Safety Report 19313762 (Version 1)
Quarter: 2021Q2

REPORT INFORMATION
  Report Type: Spontaneous
  Country: US (occurrence: US)
  Receive Date: 20210527
  Receipt Date: 20210527
  Transmission Date: 20210717
  Serious: Yes (Other)
  Sender: FDA-Public Use
  Company Number: US-AUROBINDO-AUR-APL-2019-084033

PATIENT
  Age: 70 Year
  Sex: Female

DRUGS (3)
  1. FLUCONAZOLE. [Concomitant]
     Active Substance: FLUCONAZOLE
     Indication: ORAL CANDIDIASIS
     Dosage: UNK
     Route: 065
  2. OMEPRAZOLE. [Suspect]
     Active Substance: OMEPRAZOLE
     Indication: GASTROOESOPHAGEAL SPHINCTER INSUFFICIENCY
     Dosage: UNK
     Route: 065
  3. LOSARTAN. [Concomitant]
     Active Substance: LOSARTAN
     Indication: PRODUCT USED FOR UNKNOWN INDICATION
     Dosage: UNK
     Route: 065

REACTIONS (11)
  - Anhedonia [Unknown]
  - Mental impairment [Unknown]
  - Bradykinesia [Unknown]
  - Decreased appetite [Unknown]
  - Confusional state [Unknown]
  - Off label use [Recovered/Resolved]
  - Apallic syndrome [Unknown]
  - Depression [Recovered/Resolved]
  - Hallucinations, mixed [Unknown]
  - Social avoidant behaviour [Unknown]
  - Hyponatraemia [Unknown]
